FAERS Safety Report 5663913-9 (Version None)
Quarter: 2008Q1

REPORT INFORMATION
  Report Type: 
  Country: None (occurrence: None)
  Receive Date: 20080311
  Receipt Date: 20080227
  Transmission Date: 20080703
  Serious: Yes (Death)
  Sender: FDA-Public Use
  Company Number: 2007US003200

PATIENT
  Age: 73 Year
  Sex: Male
  Weight: 65.2 kg

DRUGS (22)
  1. AMBISOME [Suspect]
     Indication: BRONCHOPULMONARY ASPERGILLOSIS
     Dosage: 150 MG, UID/QD, IV NOS
     Route: 042
     Dates: start: 20070623, end: 20070702
  2. OMEGACIN(BIAPENEM) [Suspect]
     Indication: DRUG USE FOR UNKNOWN INDICATION
     Dosage: 1.2 G, UID/QD
     Dates: start: 20070629
  3. AMINOTRIPA 2 (AMINO ACIDS NOS, CARBOHYDRATES NOS, ELECTOLYTES NOS) [Concomitant]
  4. ALTAT (RAXATIDINE ACETATE HYDROCHLORIDE) [Concomitant]
  5. MULTAMIN (VITAMINS NOS) [Concomitant]
  6. DOPAMINE HYDROCHLORIDE [Concomitant]
  7. DOBUTREX [Concomitant]
  8. HUMULIN R [Concomitant]
  9. MEROPEN (MEROPENEM) [Concomitant]
  10. VANCOMYCIN HYDROCHLORIDE [Concomitant]
  11. BACTRIM [Concomitant]
  12. PREDONINE (PREDNISOLONE SODIUM SUCCINATE) [Concomitant]
  13. MIDAZOLAM HYDROCHLORIDE [Concomitant]
  14. FUNGUARD (MICAFUNGIN SODIUM) [Concomitant]
  15. CHLOR-TRIMETON [Concomitant]
  16. SODIUM CHLORIDE 0.9% [Concomitant]
  17. HICALIQ (GLUCOSE, POTASSIUM ACETATE, MAGNESIUM SULFATE, ZINC SULFATE, [Concomitant]
  18. AMINIC (AMINO ACIDS NOS) [Concomitant]
  19. SOLITA-T1 (GLUCOSE, SODIUM LACTATE, SODIUM CHLORIDE) [Concomitant]
  20. HYDROCORTISONE SODIUM SUCCINATE [Concomitant]
  21. RED BLOOD CELLS [Concomitant]
  22. FULCALIQ 3 [Concomitant]

REACTIONS (2)
  - BLOOD CREATININE INCREASED [None]
  - CARDIAC FAILURE [None]
